FAERS Safety Report 6017909-8 (Version None)
Quarter: 2008Q4

REPORT INFORMATION
  Report Type: 
  Country: None (occurrence: None)
  Receive Date: 20081223
  Receipt Date: 20081212
  Transmission Date: 20090506
  Serious: Yes (Other)
  Sender: FDA-Public Use
  Company Number: US-JNJFOC-20081204118

PATIENT
  Sex: Female
  Weight: 102.06 kg

DRUGS (4)
  1. TOPAMAX [Suspect]
     Indication: MIGRAINE PROPHYLAXIS
     Route: 048
  2. FROVA [Suspect]
     Indication: MIGRAINE
  3. RELPAX [Concomitant]
     Indication: MIGRAINE
  4. AMITRIPTYLINE [Concomitant]
     Indication: MIGRAINE

REACTIONS (4)
  - MIGRAINE [None]
  - PRODUCT COUNTERFEIT [None]
  - THERAPEUTIC RESPONSE DECREASED [None]
  - THROAT TIGHTNESS [None]
